FAERS Safety Report 4957026-9 (Version None)
Quarter: 2006Q1

REPORT INFORMATION
  Report Type: 
  Country: None (occurrence: None)
  Receive Date: 20060127
  Receipt Date: 20050819
  Transmission Date: 20060701
  Serious: Yes (Other)
  Sender: FDA-Public Use
  Company Number: 05-08-1465

PATIENT
  Age: 12 Year
  Sex: Male
  Weight: 42.8649 kg

DRUGS (4)
  1. CLOZAPINE [Suspect]
     Indication: PSYCHOTIC DISORDER
     Dosage: 400 MG, QD, ORAL
     Route: 048
     Dates: start: 20050615, end: 20050819
  2. DESMOPRESSIN [Concomitant]
  3. CHLORPROMAXINE HYDROCHLORIDE [Concomitant]
  4. DIPHENHYDRAMINE HYDROCHLORIDE [Concomitant]

REACTIONS (1)
  - GRANULOCYTOPENIA [None]
